FAERS Safety Report 6176451-4 (Version None)
Quarter: 2009Q2

REPORT INFORMATION
  Report Type: 
  Country: None (occurrence: None)
  Receive Date: 20090501
  Receipt Date: 20090427
  Transmission Date: 20091009
  Serious: Yes (Life-Threatening)
  Sender: FDA-Public Use
  Company Number: FR-ASTRAZENECA-1999AS00016

PATIENT
  Age: 42 Year
  Sex: Male

DRUGS (5)
  1. LIDOCAINE HCL IN PLASTIC CONTAINER [Suspect]
     Route: 014
     Dates: start: 19991202, end: 19991202
  2. MIDAZOLAM HYDROCHLORIDE [Suspect]
     Route: 042
     Dates: start: 19991202, end: 19991202
  3. PROPOFOL [Suspect]
     Route: 042
     Dates: start: 19991202, end: 19991202
  4. ALFENTANIL [Suspect]
     Route: 042
  5. HEXABRIX [Suspect]
     Route: 014

REACTIONS (3)
  - ANAPHYLACTIC SHOCK [None]
  - CARDIAC ARREST [None]
  - RESPIRATORY ARREST [None]
